FAERS Safety Report 4361003-9 (Version None)
Quarter: 2004Q2

REPORT INFORMATION
  Report Type: 
  Country: None (occurrence: None)
  Receive Date: 20040517
  Receipt Date: 20040504
  Transmission Date: 20050107
  Serious: Yes (Other)
  Sender: FDA-Public Use
  Company Number: 2004212323DE

PATIENT
  Age: 63 Year
  Sex: Female
  Weight: 78 kg

DRUGS (2)
  1. BEXTRA [Suspect]
     Indication: ARTHROPATHY
     Dosage: 10 MG, QD, ORAL
     Route: 048
     Dates: start: 20031212, end: 20031215
  2. MARCUMAR [Concomitant]

REACTIONS (1)
  - INTERNATIONAL NORMALISED RATIO INCREASED [None]
